FAERS Safety Report 24827725 (Version 6)
Quarter: 2025Q2

REPORT INFORMATION
  Report Type: Report from Study
  Country: CA (occurrence: CA)
  Receive Date: 20250109
  Receipt Date: 20250623
  Transmission Date: 20250716
  Serious: Yes (Death, Hospitalization)
  Sender: ABBVIE
  Company Number: CA-ABBVIE-6071810

PATIENT
  Age: 84 Year
  Sex: Male

DRUGS (37)
  1. VENETOCLAX [Suspect]
     Active Substance: VENETOCLAX
     Indication: Acute myeloid leukaemia
     Route: 048
     Dates: start: 20240714, end: 20240714
  2. VENETOCLAX [Suspect]
     Active Substance: VENETOCLAX
     Indication: Acute myeloid leukaemia
     Route: 048
     Dates: start: 20240715, end: 20240715
  3. VENETOCLAX [Suspect]
     Active Substance: VENETOCLAX
     Indication: Acute myeloid leukaemia
     Route: 048
     Dates: start: 20240716, end: 20240720
  4. VENETOCLAX [Suspect]
     Active Substance: VENETOCLAX
     Indication: Acute myeloid leukaemia
     Route: 048
     Dates: start: 20240720, end: 20241230
  5. AZACITIDINE [Suspect]
     Active Substance: AZACITIDINE
     Indication: Acute myeloid leukaemia
     Route: 065
     Dates: start: 20240714, end: 20240720
  6. AZACITIDINE [Suspect]
     Active Substance: AZACITIDINE
     Indication: Acute myeloid leukaemia
     Route: 065
     Dates: start: 20241104, end: 20241108
  7. COVID-19 vaccine mRNA [Concomitant]
     Indication: COVID-19 immunisation
     Route: 030
  8. COVID-19 vaccine mRNA [Concomitant]
     Indication: COVID-19 immunisation
     Route: 030
  9. COVID-19 vaccine mRNA [Concomitant]
     Indication: COVID-19 immunisation
     Route: 030
  10. COVID-19 vaccine mRNA [Concomitant]
     Indication: COVID-19 immunisation
     Route: 030
  11. COVID-19 vaccine mRNA [Concomitant]
     Indication: COVID-19 immunisation
     Route: 030
  12. COVID-19 vaccine mRNA [Concomitant]
     Indication: COVID-19 immunisation
     Route: 030
  13. NYSTATIN [Concomitant]
     Active Substance: NYSTATIN
     Indication: Oropharyngeal pain
     Route: 048
     Dates: start: 20240812, end: 20240816
  14. NYSTATIN [Concomitant]
     Active Substance: NYSTATIN
     Indication: Oropharyngeal pain
     Dosage: 400,000 UNITS
     Route: 048
     Dates: start: 20240911, end: 20240915
  15. ONDANSETRON [Concomitant]
     Active Substance: ONDANSETRON
     Indication: Nausea
     Dates: start: 20241104, end: 20241111
  16. PANTOPRAZOLE [Concomitant]
     Active Substance: PANTOPRAZOLE
     Indication: Gastrooesophageal reflux disease
     Route: 048
     Dates: start: 20240905, end: 20241230
  17. SENOKOT [Concomitant]
     Active Substance: SENNOSIDES
     Indication: Constipation
     Route: 048
     Dates: start: 20240907, end: 20240907
  18. FLUCONAZOLE [Concomitant]
     Active Substance: FLUCONAZOLE
     Indication: Oropharyngeal pain
     Route: 048
     Dates: start: 20240821, end: 20240825
  19. AMOXICILLIN\CLAVULANIC ACID [Concomitant]
     Active Substance: AMOXICILLIN\CLAVULANIC ACID
     Indication: Anti-infective therapy
     Dosage: 875/125
     Route: 048
     Dates: start: 20240828, end: 20240903
  20. AMOXICILLIN\CLAVULANIC ACID [Concomitant]
     Active Substance: AMOXICILLIN\CLAVULANIC ACID
     Indication: Anti-infective therapy
     Dosage: 875/125
     Route: 048
     Dates: start: 20240910, end: 20241008
  21. TYLENOL WITH CODEINE [Concomitant]
     Active Substance: ACETAMINOPHEN\CODEINE PHOSPHATE
     Indication: Oropharyngeal pain
     Route: 048
     Dates: start: 20240813, end: 20240823
  22. APIXABAN [Concomitant]
     Active Substance: APIXABAN
     Indication: Anticoagulant therapy
     Route: 048
     Dates: start: 20240910, end: 20241230
  23. HYDROMORPHONE [Concomitant]
     Active Substance: HYDROMORPHONE
     Indication: Pain management
     Route: 042
     Dates: start: 20240906, end: 20240906
  24. ATORVASTATIN [Concomitant]
     Active Substance: ATORVASTATIN
     Indication: Lipids abnormal
     Route: 048
     Dates: end: 20240905
  25. ATORVASTATIN [Concomitant]
     Active Substance: ATORVASTATIN
     Indication: Lipids abnormal
     Route: 048
     Dates: start: 20240905, end: 20241230
  26. ACETAMINOPHEN [Concomitant]
     Active Substance: ACETAMINOPHEN
     Indication: Pain management
     Route: 048
     Dates: start: 20240904, end: 20240911
  27. ALTEPLASE [Concomitant]
     Active Substance: ALTEPLASE
     Indication: Anticoagulant therapy
     Dates: start: 20240906, end: 20240906
  28. DILTIAZEM [Concomitant]
     Active Substance: DILTIAZEM
     Indication: Hypertension
     Route: 048
     Dates: end: 20241230
  29. STREPTODORNASE\STREPTOKINASE [Concomitant]
     Active Substance: STREPTODORNASE\STREPTOKINASE
     Indication: Chest tube insertion
     Dosage: ROUTE CHEST TUBE
     Dates: start: 20240906, end: 20240906
  30. ESOMEPRAZOLE [Concomitant]
     Active Substance: ESOMEPRAZOLE
     Indication: Gastrooesophageal reflux disease
     Route: 048
     Dates: end: 20240904
  31. METOPROLOL TARTRATE [Concomitant]
     Active Substance: METOPROLOL TARTRATE
     Indication: Hypertension
     Route: 048
     Dates: end: 20241230
  32. TAMSULOSIN [Concomitant]
     Active Substance: TAMSULOSIN
     Indication: Benign prostatic hyperplasia
     Route: 048
     Dates: end: 20241230
  33. VALACYCLOVIR [Concomitant]
     Active Substance: VALACYCLOVIR HYDROCHLORIDE
     Indication: Antiviral treatment
     Route: 048
     Dates: start: 20240719, end: 20241230
  34. ZOPICLONE [Concomitant]
     Active Substance: ZOPICLONE
     Indication: Sleep disorder
     Route: 048
     Dates: start: 20240905, end: 20240911
  35. PIPERACILLIN AND TAZOBACTAM [Concomitant]
     Active Substance: PIPERACILLIN SODIUM\TAZOBACTAM SODIUM
     Indication: Antibiotic therapy
     Route: 042
     Dates: start: 20240904, end: 20240910
  36. PIPERACILLIN AND TAZOBACTAM [Concomitant]
     Active Substance: PIPERACILLIN SODIUM\TAZOBACTAM SODIUM
     Indication: Antibiotic therapy
     Route: 042
     Dates: start: 20240904, end: 20240904
  37. PREDNISONE [Concomitant]
     Active Substance: PREDNISONE
     Indication: Pain
     Route: 048
     Dates: start: 20241225, end: 20241230

REACTIONS (1)
  - Depressed level of consciousness [Fatal]

NARRATIVE: CASE EVENT DATE: 20241228
